FAERS Safety Report 4284399-5 (Version None)
Quarter: 2004Q1

REPORT INFORMATION
  Report Type: 
  Country: None (occurrence: None)
  Receive Date: 20040203
  Receipt Date: 20040129
  Transmission Date: 20041129
  Serious: Yes (Life-Threatening, Hospitalization)
  Sender: FDA-Public Use
  Company Number: PHNR2004AU00515

PATIENT
  Age: 34 Year
  Sex: Female
  Weight: 73 kg

DRUGS (2)
  1. VOLTAREN [Suspect]
     Dosage: 100 MG, QD
     Route: 054
  2. MARCAIN WITH FENTANYL [Concomitant]
     Dosage: AS NECESSARY
     Route: 042
     Dates: start: 20020515, end: 20020516

REACTIONS (5)
  - BRONCHOSPASM [None]
  - COMPLICATIONS OF MATERNAL EXPOSURE TO THERAPEUTIC DRUGS [None]
  - PREGNANCY [None]
  - RASH PRURITIC [None]
  - URTICARIA [None]
